FAERS Safety Report 20052179 (Version 1)
Quarter: 2021Q4

REPORT INFORMATION
  Report Type: Report from Study
  Country: US (occurrence: US)
  Receive Date: 20211110
  Receipt Date: 20211110
  Transmission Date: 20220304
  Serious: Yes (Other)
  Sender: FDA-Public Use
  Company Number: US-NOVARTISPH-NVSC2021US253911

PATIENT
  Age: 47 Year
  Sex: Female

DRUGS (1)
  1. ENTRESTO [Suspect]
     Active Substance: SACUBITRIL\VALSARTAN
     Indication: Product used for unknown indication
     Dosage: 1 DF (SHE CAN^T REMEMBER IF ONCE OR TWICE/DAY)
     Route: 048
     Dates: start: 20210622

REACTIONS (2)
  - Diabetes mellitus [Unknown]
  - Memory impairment [Unknown]
